FAERS Safety Report 11434457 (Version 1)
Quarter: 2015Q3

REPORT INFORMATION
  Report Type: Spontaneous
  Country: JP (occurrence: JP)
  Receive Date: 20150831
  Receipt Date: 20150831
  Transmission Date: 20151125
  Serious: Yes (Hospitalization)
  Sender: FDA-Public Use
  Company Number: JP-TEVA-2015-JP-001596J

PATIENT
  Age: 87 Year
  Sex: Female
  Weight: 74 kg

DRUGS (3)
  1. CEFTRIAXONE NA FOR I.V. INJECTION 1G ^TEVA^ [Suspect]
     Active Substance: CEFTRIAXONE SODIUM
     Indication: URINARY TRACT INFECTION
     Dosage: 2 GRAM DAILY;
     Route: 041
     Dates: start: 20150811
  2. DOGMATYL [Concomitant]
     Active Substance: SULPIRIDE
     Route: 048
  3. JZOLOFT [Concomitant]
     Active Substance: SERTRALINE HYDROCHLORIDE
     Route: 048

REACTIONS (4)
  - Restlessness [Unknown]
  - Chest discomfort [Unknown]
  - Stress cardiomyopathy [Recovering/Resolving]
  - Rash [Recovered/Resolved]

NARRATIVE: CASE EVENT DATE: 20150811
